FAERS Safety Report 14452683 (Version 4)
Quarter: 2018Q2

REPORT INFORMATION
  Report Type: Report from Study
  Country: US (occurrence: US)
  Receive Date: 20180129
  Receipt Date: 20180427
  Transmission Date: 20180711
  Serious: Yes (Other)
  Sender: FDA-Public Use
  Company Number: US-PFIZER INC-2017512760

PATIENT
  Age: 47 Year
  Sex: Female

DRUGS (3)
  1. IBRANCE [Suspect]
     Active Substance: PALBOCICLIB
     Indication: BREAST CANCER FEMALE
     Dosage: 125 MG, CYCLIC, (DAILY; 3 WEEKS ON/1 WEEK OFF)
     Route: 048
     Dates: start: 20171108, end: 20180301
  2. IBRANCE [Suspect]
     Active Substance: PALBOCICLIB
     Dosage: 125 MG, CYCLIC (DAILY; 3 WEEKS ON/1 WEEK OFF)
     Route: 048
  3. IBRANCE [Suspect]
     Active Substance: PALBOCICLIB
     Dosage: 100 MG, CYCLIC (DAILY; 3 WEEKS ON/1 WEEK OFF)
     Route: 048
     Dates: start: 20180317

REACTIONS (14)
  - Pulmonary pain [Unknown]
  - Epistaxis [Unknown]
  - Feeling abnormal [Unknown]
  - Bone marrow failure [Unknown]
  - Diarrhoea [Unknown]
  - Fatigue [Unknown]
  - Dizziness [Unknown]
  - Dyspnoea exertional [Recovering/Resolving]
  - Nasopharyngitis [Recovering/Resolving]
  - Musculoskeletal stiffness [Unknown]
  - Myalgia [Unknown]
  - Dyspnoea [Unknown]
  - Cough [Recovering/Resolving]
  - Respiratory tract irritation [Unknown]

NARRATIVE: CASE EVENT DATE: 2017
